FAERS Safety Report 20869646 (Version 3)
Quarter: 2022Q3

REPORT INFORMATION
  Report Type: Report from Study
  Country: US (occurrence: US)
  Receive Date: 20220525
  Receipt Date: 20220721
  Transmission Date: 20221027
  Serious: No
  Sender: FDA-Public Use
  Company Number: US-NOVARTISTESTPH-NVSC2022US119930

PATIENT
  Sex: Female

DRUGS (1)
  1. ENTRESTO [Suspect]
     Active Substance: SACUBITRIL\VALSARTAN
     Indication: Product used for unknown indication
     Dosage: 1 DOSAGE FORM, BID(24/26 MG)
     Route: 048
     Dates: start: 2019

REACTIONS (7)
  - Fluid retention [Unknown]
  - Dysgeusia [Unknown]
  - Muscle spasms [Unknown]
  - Muscle spasticity [Unknown]
  - Pain in extremity [Recovering/Resolving]
  - Muscle atrophy [Unknown]
  - Urinary incontinence [Unknown]
